FAERS Safety Report 9794261 (Version 1)
Quarter: 2014Q1

REPORT INFORMATION
  Report Type: Spontaneous
  Country: US (occurrence: US)
  Receive Date: 20140102
  Receipt Date: 20140102
  Transmission Date: 20141002
  Serious: No
  Sender: FDA-Public Use
  Company Number: US-AMGEN-USASP2013087979

PATIENT
  Age: 66 Year
  Sex: Female

DRUGS (1)
  1. ENBREL [Suspect]
     Indication: PSORIASIS
     Dosage: 50 MG, TWICE A WEEK
     Route: 065
     Dates: start: 20120925

REACTIONS (7)
  - Hypoaesthesia [Not Recovered/Not Resolved]
  - Secretion discharge [Recovered/Resolved]
  - Cough [Recovered/Resolved]
  - Blood glucose abnormal [Recovered/Resolved]
  - Skin plaque [Recovered/Resolved]
  - Anxiety [Recovered/Resolved]
  - Herpes zoster [Recovered/Resolved]
